FAERS Safety Report 12721287 (Version 2)
Quarter: 2016Q3

REPORT INFORMATION
  Report Type: Spontaneous
  Country: US (occurrence: JO)
  Receive Date: 20160907
  Receipt Date: 20160913
  Transmission Date: 20161109
  Serious: Yes (Other)
  Sender: FDA-Public Use
  Company Number: US-JNJFOC-20160904732

PATIENT

DRUGS (11)
  1. DOXORUBICIN [Suspect]
     Active Substance: DOXORUBICIN
     Indication: METASTASES TO LIVER
     Route: 013
  2. DOXORUBICIN [Suspect]
     Active Substance: DOXORUBICIN
     Indication: NEUROENDOCRINE TUMOUR
     Route: 013
  3. OCTREOTIDE. [Concomitant]
     Active Substance: OCTREOTIDE
     Dosage: DOSE: 2 MICROGRAM/ ML
     Route: 042
  4. HYDROCORTISONE. [Concomitant]
     Active Substance: HYDROCORTISONE
     Indication: PROPHYLAXIS
     Route: 065
  5. DOXORUBICIN [Suspect]
     Active Substance: DOXORUBICIN
     Indication: NEUROENDOCRINE TUMOUR
     Route: 013
  6. MITOMYCIN C [Suspect]
     Active Substance: MITOMYCIN
     Indication: NEUROENDOCRINE TUMOUR
     Route: 013
  7. ALLOPURINOL. [Concomitant]
     Active Substance: ALLOPURINOL
     Indication: PROPHYLAXIS
     Route: 065
  8. CISPLATIN. [Suspect]
     Active Substance: CISPLATIN
     Indication: METASTASES TO LIVER
     Route: 013
  9. DOXORUBICIN [Suspect]
     Active Substance: DOXORUBICIN
     Indication: METASTASES TO LIVER
     Route: 013
  10. CISPLATIN. [Suspect]
     Active Substance: CISPLATIN
     Indication: NEUROENDOCRINE TUMOUR
     Route: 013
  11. MITOMYCIN C [Suspect]
     Active Substance: MITOMYCIN
     Indication: METASTASES TO LIVER
     Route: 013

REACTIONS (11)
  - Duodenitis haemorrhagic [Unknown]
  - Mental status changes [Unknown]
  - Off label use [Unknown]
  - Product use issue [Unknown]
  - Hepatic failure [Unknown]
  - Pain [Unknown]
  - Cholecystitis [Unknown]
  - Liver abscess [Unknown]
  - Vascular pseudoaneurysm [Unknown]
  - Sepsis [Unknown]
  - Incorrect route of drug administration [Unknown]
